FAERS Safety Report 16553998 (Version 2)
Quarter: 2019Q3

REPORT INFORMATION
  Report Type: Spontaneous
  Country: US (occurrence: US)
  Receive Date: 20190710
  Receipt Date: 20190710
  Transmission Date: 20191004
  Serious: Yes (Hospitalization)
  Sender: FDA-Public Use
  Company Number: US-CELGENEUS-USA-20190611046

PATIENT
  Sex: Male

DRUGS (1)
  1. REVLIMID [Suspect]
     Active Substance: LENALIDOMIDE
     Indication: PLASMA CELL MYELOMA
     Dosage: 5 MILLIGRAM
     Route: 048
     Dates: start: 201902

REACTIONS (9)
  - Diarrhoea [Unknown]
  - Cough [Unknown]
  - Rash pruritic [Unknown]
  - Heart rate increased [Unknown]
  - Arrhythmia [Unknown]
  - Erythema [Unknown]
  - Blood pressure decreased [Unknown]
  - Burning sensation [Unknown]
  - Dysphagia [Unknown]

NARRATIVE: CASE EVENT DATE: 2019
